FAERS Safety Report 6067893-6 (Version None)
Quarter: 2009Q1

REPORT INFORMATION
  Report Type: 
  Country: None (occurrence: None)
  Receive Date: 20090203
  Receipt Date: 20090112
  Transmission Date: 20090719
  Serious: Yes (Death)
  Sender: FDA-Public Use
  Company Number: 157889

PATIENT
  Age: 51 Year
  Sex: Female

DRUGS (5)
  1. METHOTREXATE [Suspect]
     Indication: ACUTE LYMPHOCYTIC LEUKAEMIA
     Dosage: 12.5 MG, EVERY 14 DAYS, INTRATHECAL
     Route: 037
  2. VINCRISTINE SULFATE [Suspect]
     Indication: ACUTE LYMPHOCYTIC LEUKAEMIA
     Dosage: 1.5 MG/M2,
  3. DAUNORUBICIN HCL [Suspect]
     Indication: ACUTE LYMPHOCYTIC LEUKAEMIA
     Dosage: 45 MG/M2,
  4. PREDNISONE [Suspect]
     Indication: ACUTE LYMPHOCYTIC LEUKAEMIA
     Dosage: 40 MG/M2,
  5. (ASPARAGINASE) [Suspect]
     Indication: ACUTE LYMPHOCYTIC LEUKAEMIA
     Dosage: 6000 U/M2, EVERY SECOND DAY,

REACTIONS (14)
  - ABDOMINAL DISTENSION [None]
  - FACIAL PARESIS [None]
  - FLATULENCE [None]
  - GENERAL PHYSICAL HEALTH DETERIORATION [None]
  - HEMIPARESIS [None]
  - HYPOAESTHESIA [None]
  - HYPOGLOSSAL NERVE PARESIS [None]
  - LIVER TENDERNESS [None]
  - PANCYTOPENIA [None]
  - PYREXIA [None]
  - SOMNOLENCE [None]
  - STUPOR [None]
  - VENOOCCLUSIVE LIVER DISEASE [None]
  - VOMITING [None]
